FAERS Safety Report 16006061 (Version 1)
Quarter: 2019Q1

REPORT INFORMATION
  Report Type: Spontaneous
  Country: FR (occurrence: FR)
  Receive Date: 20190226
  Receipt Date: 20190226
  Transmission Date: 20190418
  Serious: Yes (Hospitalization)
  Sender: FDA-Public Use
  Company Number: FR-ASTRAZENECA-2019SE28654

PATIENT
  Age: 59 Year
  Sex: Male

DRUGS (4)
  1. CALCIPARINE [Concomitant]
     Active Substance: HEPARIN CALCIUM
     Route: 058
     Dates: start: 20140511
  2. INEXIUM [Suspect]
     Active Substance: ESOMEPRAZOLE
     Route: 048
     Dates: start: 20140505
  3. RIAMET [Suspect]
     Active Substance: ARTEMETHER\LUMEFANTRINE
     Route: 048
     Dates: start: 20140508, end: 20140511
  4. ARTESUNATE [Suspect]
     Active Substance: ARTESUNATE
     Indication: MALARIA
     Route: 042
     Dates: start: 20140505, end: 20140507

REACTIONS (1)
  - Haemolytic anaemia [Not Recovered/Not Resolved]

NARRATIVE: CASE EVENT DATE: 20140506
